FAERS Safety Report 8017585-9 (Version None)
Quarter: 2012Q1

REPORT INFORMATION
  Report Type: 
  Country: None (occurrence: None)
  Receive Date: 20120103
  Receipt Date: 20111228
  Transmission Date: 20120608
  Serious: Yes (Other)
  Sender: FDA-Public Use
  Company Number: FR-ACCORD-011885

PATIENT
  Age: 43 Year
  Sex: Male

DRUGS (5)
  1. CETUXIMAB [Concomitant]
  2. BEVACIZUMAB [Suspect]
     Dosage: BEVACIZUMAB FROM SEP-06 TO APR-07 (12 CYCLES), RECEIVED TOTAL OF 16,750 MG
     Dates: start: 20060901
  3. LEUCOVORIN CALCIUM [Concomitant]
     Dosage: FOLFIRI FROM SEP-06 TO APR-07 (12 CYCLES)
     Dates: start: 20060901
  4. FLUOROURACIL [Suspect]
     Dosage: FOLFIRI FROM SEP-06 TO APR-07 (12 CYCLES)
     Dates: start: 20060901
  5. IRINOTECAN HYDROCHLORIDE [Suspect]
     Dosage: FOLFIRI FROM SEP-06 TO APR-07 (12 CYCLES)
     Dates: start: 20060901

REACTIONS (2)
  - RESTRICTIVE PULMONARY DISEASE [None]
  - RESPIRATORY DISORDER [None]
